FAERS Safety Report 25646068 (Version 2)
Quarter: 2025Q4

REPORT INFORMATION
  Report Type: Spontaneous
  Country: US (occurrence: US)
  Receive Date: 20250805
  Receipt Date: 20251105
  Transmission Date: 20260118
  Serious: Yes (Death, Hospitalization, Disabling)
  Sender: BAUSCH AND LOMB
  Company Number: US-BAUSCH-BH-2025-015611

PATIENT
  Age: 94 Year
  Sex: Male

DRUGS (3)
  1. ATIVAN [Suspect]
     Active Substance: LORAZEPAM
     Indication: Agitation
     Dosage: LOW DOSE, ONE TIME ADMINISTRATION
     Route: 048
     Dates: start: 20241012, end: 20241012
  2. SEROQUEL [Suspect]
     Active Substance: QUETIAPINE FUMARATE
     Indication: Agitation
     Dosage: LOW DOSE, ONE TIME ADMINISTRATION
     Route: 048
     Dates: start: 20241012, end: 20241012
  3. FLUZONE HIGH-DOSE NOS [Suspect]
     Active Substance: INFLUENZA VIRUS VACCINE
     Indication: Influenza immunisation
     Route: 065
     Dates: start: 20241006, end: 20241006

REACTIONS (8)
  - Toxic encephalopathy [Fatal]
  - Dysphagia [Not Recovered/Not Resolved]
  - Breath odour [Unknown]
  - Respiration abnormal [Unknown]
  - Somnolence [Recovered/Resolved]
  - Hypotension [Recovered/Resolved]
  - Therapeutic product effect decreased [Unknown]
  - Hospice care [Unknown]

NARRATIVE: CASE EVENT DATE: 20241001
